FAERS Safety Report 21241855 (Version 1)
Quarter: 2022Q3

REPORT INFORMATION
  Report Type: Spontaneous
  Country: US (occurrence: US)
  Receive Date: 20220823
  Receipt Date: 20220823
  Transmission Date: 20221027
  Serious: No
  Sender: FDA-Public Use
  Company Number: US-BAUSCH-BL-2022-020460

PATIENT
  Age: 73 Year
  Sex: Female

DRUGS (1)
  1. ALAWAY PRESERVATIVE FREE [Suspect]
     Active Substance: KETOTIFEN FUMARATE
     Indication: Eye allergy
     Route: 047
     Dates: start: 20220813, end: 20220816

REACTIONS (3)
  - Instillation site erythema [Not Recovered/Not Resolved]
  - Instillation site lacrimation [Not Recovered/Not Resolved]
  - Eyelid irritation [Not Recovered/Not Resolved]
